FAERS Safety Report 9690859 (Version 1)
Quarter: 2013Q4

REPORT INFORMATION
  Report Type: Spontaneous
  Country: US (occurrence: None)
  Receive Date: 20131114
  Receipt Date: 20131114
  Transmission Date: 20140711
  Serious: Yes (Hospitalization)
  Sender: FDA-Public Use
  Company Number: None

PATIENT
  Age: 79 Year
  Sex: Male
  Weight: 67.59 kg

DRUGS (7)
  1. JANUVIA [Suspect]
     Indication: TYPE 2 DIABETES MELLITUS
     Route: 048
     Dates: start: 20110328
  2. LANOXIN [Concomitant]
  3. FLOMAX [Concomitant]
  4. COREG [Concomitant]
  5. PROVASTATIN [Concomitant]
  6. NORCO [Concomitant]
  7. GABAPENTIN [Concomitant]

REACTIONS (3)
  - Pancreatitis [None]
  - Cholecystitis [None]
  - Cholelithiasis [None]
